FAERS Safety Report 13097461 (Version 2)
Quarter: 2017Q2

REPORT INFORMATION
  Report Type: Spontaneous
  Country: US (occurrence: US)
  Receive Date: 20170109
  Receipt Date: 20170511
  Transmission Date: 20170830
  Serious: Yes (Death)
  Sender: FDA-Public Use
  Company Number: US-VANDA PHARMACEUTICALS, INC-2016TASUS001480

PATIENT
  Age: 65 Year
  Sex: Male

DRUGS (2)
  1. HETLIOZ [Suspect]
     Active Substance: TASIMELTEON
     Indication: BLINDNESS
  2. HETLIOZ [Suspect]
     Active Substance: TASIMELTEON
     Indication: CIRCADIAN RHYTHM SLEEP DISORDER
     Dosage: 20 MG, NIGHTLY, (1HR BEFORE BEDTIME)
     Route: 048
     Dates: start: 201611, end: 201612

REACTIONS (1)
  - Death [Fatal]

NARRATIVE: CASE EVENT DATE: 20161223
